FAERS Safety Report 13455962 (Version 1)
Quarter: 2017Q2

REPORT INFORMATION
  Report Type: Spontaneous
  Country: AR (occurrence: AR)
  Receive Date: 20170419
  Receipt Date: 20170419
  Transmission Date: 20170830
  Serious: Yes (Hospitalization)
  Sender: FDA-Public Use
  Company Number: AR-IPCA LABORATORIES LIMITED-IPC201704-000516

PATIENT
  Age: 45 Year
  Sex: Male

DRUGS (1)
  1. METOCLOPRAMIDE HYDROCHLORIDE. [Suspect]
     Active Substance: METOCLOPRAMIDE HYDROCHLORIDE
     Indication: NAUSEA

REACTIONS (1)
  - Generalised tonic-clonic seizure [Unknown]
